FAERS Safety Report 11055996 (Version 2)
Quarter: 2015Q2

REPORT INFORMATION
  Report Type: Spontaneous
  Country: US (occurrence: US)
  Receive Date: 20150422
  Receipt Date: 20150508
  Transmission Date: 20150821
  Serious: No
  Sender: FDA-Public Use
  Company Number: US-ASTRAZENECA-2014SE55587

PATIENT
  Sex: Female
  Weight: 97.5 kg

DRUGS (11)
  1. NADIFLOXACIN [Concomitant]
     Active Substance: NADIFLOXACIN
  2. FARXIGA [Suspect]
     Active Substance: DAPAGLIFLOZIN PROPANEDIOL
     Indication: TYPE 2 DIABETES MELLITUS
     Route: 048
     Dates: start: 2014
  3. EXFORGE [Concomitant]
     Active Substance: AMLODIPINE BESYLATE\VALSARTAN
  4. LISINOPRIL. [Concomitant]
     Active Substance: LISINOPRIL
  5. BYETTA [Suspect]
     Active Substance: EXENATIDE
     Indication: TYPE 2 DIABETES MELLITUS
     Route: 058
  6. KOMBIGLYZE XR [Suspect]
     Active Substance: METFORMIN HYDROCHLORIDE\SAXAGLIPTIN HYDROCHLORIDE
     Indication: TYPE 2 DIABETES MELLITUS
     Dosage: 1DF=5 MG/1000 MG
     Route: 048
  7. SYNTHROID [Concomitant]
     Active Substance: LEVOTHYROXINE SODIUM
  8. LASIX [Concomitant]
     Active Substance: FUROSEMIDE
  9. CELEBREX [Concomitant]
     Active Substance: CELECOXIB
  10. NEXIUM [Suspect]
     Active Substance: ESOMEPRAZOLE MAGNESIUM
     Route: 048
  11. PLAVIX [Concomitant]
     Active Substance: CLOPIDOGREL BISULFATE

REACTIONS (7)
  - Pruritus [Unknown]
  - Weight decreased [Unknown]
  - Fungal infection [Unknown]
  - Panic reaction [Unknown]
  - Malaise [Recovered/Resolved]
  - Therapy cessation [Unknown]
  - Vaginal infection [Unknown]
